FAERS Safety Report 4614112-0 (Version None)
Quarter: 2005Q1

REPORT INFORMATION
  Report Type: 
  Country: None (occurrence: None)
  Receive Date: 20050316
  Receipt Date: 20050303
  Transmission Date: 20050727
  Serious: Yes (Other)
  Sender: FDA-Public Use
  Company Number: 2005040621

PATIENT
  Age: 6 Year
  Sex: Male

DRUGS (4)
  1. GENOTROPIN [Suspect]
     Indication: GROWTH HORMONE DEFICIENCY
     Dosage: 0.6 MG (DAILY), SUBCUTANEOUS
     Route: 058
     Dates: start: 20030801, end: 20050227
  2. THEOPHYLLINE [Suspect]
     Indication: ASTHMA
     Dosage: ORAL
     Route: 048
  3. FLUTICASONE PROPIONATE [Suspect]
     Indication: ASTHMA
     Dosage: INHALATION
     Route: 055
  4. PRANLUKAST (PRANLUKAST) [Suspect]
     Indication: ASTHMA
     Dosage: ORAL
     Route: 048

REACTIONS (2)
  - ALANINE AMINOTRANSFERASE INCREASED [None]
  - VIRAL INFECTION [None]
